FAERS Safety Report 6888329-9 (Version None)
Quarter: 2010Q3

REPORT INFORMATION
  Report Type: 
  Country: None (occurrence: None)
  Receive Date: 20100730
  Receipt Date: 20100629
  Transmission Date: 20110219
  Serious: No
  Sender: FDA-Public Use
  Company Number: US-BAYER-201017631BCC

PATIENT
  Age: 90 Year
  Sex: Female
  Weight: 82 kg

DRUGS (5)
  1. ALEVE [Suspect]
     Indication: ARTHRALGIA
     Dosage: TOTAL DAILY DOSE: 440 MG  UNIT DOSE: 220 MG
     Route: 048
     Dates: start: 20090101
  2. LISINOPRIL [Concomitant]
  3. OSTEO BI-FLEX [Concomitant]
  4. METAMORPHINE [Concomitant]
  5. LASIX [Concomitant]

REACTIONS (1)
  - CONTUSION [None]
